FAERS Safety Report 8908288 (Version 1)
Quarter: 2012Q4

REPORT INFORMATION
  Report Type: 
  Country: US (occurrence: US)
  Receive Date: 20121114
  Receipt Date: 20121114
  Transmission Date: 20130627
  Serious: Yes (Other)
  Sender: FDA-Public Use
  Company Number: CHPA2012US023239

PATIENT
  Age: 76 Year
  Sex: Female

DRUGS (3)
  1. EXCEDRIN MIGRAINE [Suspect]
     Indication: ARTHRITIS
     Dosage: 2 DF, Unk
     Route: 048
     Dates: start: 1992
  2. CYMBALTA [Concomitant]
     Indication: ARTHRITIS
     Dosage: Unk, Unk
  3. CELEBREX [Concomitant]
     Indication: ARTHRITIS
     Dosage: Unk, Unk

REACTIONS (4)
  - Femur fracture [Recovered/Resolved]
  - Abasia [Recovered/Resolved]
  - Therapeutic response unexpected [Unknown]
  - Off label use [Unknown]
